FAERS Safety Report 20341332 (Version 2)
Quarter: 2022Q1

REPORT INFORMATION
  Report Type: Report from Study
  Country: ES (occurrence: ES)
  Receive Date: 20220117
  Receipt Date: 20220121
  Transmission Date: 20220423
  Serious: Yes (Hospitalization)
  Sender: FDA-Public Use
  Company Number: ES-PFM-2022-00185

PATIENT
  Age: 48 Year
  Sex: Female
  Weight: 64.5 kg

DRUGS (10)
  1. ENCORAFENIB [Suspect]
     Active Substance: ENCORAFENIB
     Dosage: 450 MG, C1
     Route: 065
     Dates: start: 20210211
  2. ENCORAFENIB [Suspect]
     Active Substance: ENCORAFENIB
     Dosage: 300 MG, C2
     Route: 065
     Dates: start: 20220107
  3. BINIMETINIB [Suspect]
     Active Substance: BINIMETINIB
     Dosage: 45 MG, C1
     Route: 065
     Dates: start: 20210211
  4. BINIMETINIB [Suspect]
     Active Substance: BINIMETINIB
     Dosage: UNK, C2
     Route: 065
     Dates: start: 20220107
  5. MORPHINE [Concomitant]
     Active Substance: MORPHINE
     Indication: Pain
     Dosage: 4 MG, UNK
     Route: 042
     Dates: start: 20220106, end: 20220108
  6. DEXKETOPROFEN [Concomitant]
     Active Substance: DEXKETOPROFEN
     Indication: Pain
     Dosage: 50 MG, UNK
     Route: 042
     Dates: start: 20220106, end: 20220110
  7. METAMIZOLE [Concomitant]
     Active Substance: METAMIZOLE
     Indication: Pain
     Dosage: 2 MG, UNK
     Route: 042
     Dates: start: 20220106, end: 20220110
  8. ACETAMINOPHEN [Concomitant]
     Active Substance: ACETAMINOPHEN
     Indication: Pain
     Dosage: 1 G, UNK
     Route: 042
     Dates: start: 20220106, end: 20220110
  9. DEXAMETHASONE [Concomitant]
     Active Substance: DEXAMETHASONE
     Indication: Pain
     Dosage: 4 MG, UNK
     Route: 042
     Dates: start: 20220106, end: 20220110
  10. ONDANSETRON [Concomitant]
     Active Substance: ONDANSETRON
     Indication: Nausea
     Dosage: 4 MG, UNK
     Route: 042
     Dates: start: 20220106, end: 20220110

REACTIONS (2)
  - Pain [Recovering/Resolving]
  - Musculoskeletal chest pain [Recovering/Resolving]

NARRATIVE: CASE EVENT DATE: 20220107
